FAERS Safety Report 9796085 (Version 1)
Quarter: 2014Q1

REPORT INFORMATION
  Report Type: Spontaneous
  Country: US (occurrence: US)
  Receive Date: 20140103
  Receipt Date: 20140103
  Transmission Date: 20141002
  Serious: Yes (Other)
  Sender: FDA-Public Use
  Company Number: US-TEVA-454100USA

PATIENT
  Age: 25 Year
  Sex: Female
  Weight: 71.73 kg

DRUGS (2)
  1. PARAGARD 380A [Suspect]
     Indication: CONTRACEPTION
     Route: 015
     Dates: start: 20131008, end: 20131223
  2. TOPAMAX [Concomitant]
     Indication: CONVULSION
     Dosage: 75 MILLIGRAM DAILY;
     Route: 048

REACTIONS (7)
  - Brain neoplasm [Not Recovered/Not Resolved]
  - Fungal infection [Recovered/Resolved]
  - Bacterial vaginosis [Recovered/Resolved]
  - Back pain [Unknown]
  - Muscle spasms [Unknown]
  - Abdominal pain [Recovered/Resolved]
  - Urinary tract infection [Recovered/Resolved]
